FAERS Safety Report 9647597 (Version 1)
Quarter: 2013Q4

REPORT INFORMATION
  Report Type: Spontaneous
  Country: AU (occurrence: None)
  Receive Date: 20131024
  Receipt Date: 20131024
  Transmission Date: 20140711
  Serious: No
  Sender: FDA-Public Use
  Company Number: None

PATIENT
  Age: 51 Year
  Sex: Male

DRUGS (1)
  1. SOLARAZE [Suspect]
     Indication: SKIN DISORDER
     Dosage: GEL  TWICE DAILY  APPLIED AS MEDICATED PATCH TO SKIN?DURATION:  3-4 WEEKS
     Route: 062

REACTIONS (1)
  - Ulcer [None]
